FAERS Safety Report 4780050-6 (Version None)
Quarter: 2005Q3

REPORT INFORMATION
  Report Type: 
  Country: None (occurrence: None)
  Receive Date: 20050927
  Receipt Date: 20050905
  Transmission Date: 20060218
  Serious: Yes (Death)
  Sender: FDA-Public Use
  Company Number: PHBS2005ES12969

PATIENT
  Age: 4 Year
  Sex: Male

DRUGS (2)
  1. CYCLOSPORINE [Suspect]
     Indication: NEPHROTIC SYNDROME
     Dosage: 7 MG/KG/D
     Route: 048
  2. PREDNISONE [Suspect]
     Indication: NEPHROTIC SYNDROME
     Dosage: 2 MG/KG/D
     Route: 048

REACTIONS (18)
  - ABDOMINAL DISTENSION [None]
  - APHTHOUS STOMATITIS [None]
  - CAFE AU LAIT SPOTS [None]
  - CARDIO-RESPIRATORY ARREST [None]
  - COUGH [None]
  - DEHYDRATION [None]
  - DYSPNOEA [None]
  - GENERAL PHYSICAL HEALTH DETERIORATION [None]
  - HYPOVENTILATION [None]
  - INTERCOSTAL RETRACTION [None]
  - LUNG INFILTRATION [None]
  - PNEUMONIA HERPES VIRAL [None]
  - PYREXIA [None]
  - RALES [None]
  - RASH VESICULAR [None]
  - RESPIRATORY DISTRESS [None]
  - TONGUE COATED [None]
  - VARICELLA [None]
